FAERS Safety Report 26060604 (Version 1)
Quarter: 2025Q4

REPORT INFORMATION
  Report Type: Spontaneous
  Country: US (occurrence: US)
  Receive Date: 20251118
  Receipt Date: 20251118
  Transmission Date: 20260118
  Serious: No
  Sender: SANOFI AVENTIS
  Company Number: US-SANOFI-02717960

PATIENT
  Sex: Female

DRUGS (4)
  1. CABLIVI [Suspect]
     Active Substance: CAPLACIZUMAB-YHDP
  2. CABLIVI [Suspect]
     Active Substance: CAPLACIZUMAB-YHDP
  3. CABLIVI [Suspect]
     Active Substance: CAPLACIZUMAB-YHDP
  4. CABLIVI [Suspect]
     Active Substance: CAPLACIZUMAB-YHDP

REACTIONS (1)
  - Injury associated with device [Unknown]
